FAERS Safety Report 4588514-5 (Version None)
Quarter: 2005Q1

REPORT INFORMATION
  Report Type: 
  Country: None (occurrence: None)
  Receive Date: 20050216
  Receipt Date: 20050216
  Transmission Date: 20050727
  Serious: Yes (Death)
  Sender: FDA-Public Use
  Company Number: None

PATIENT
  Age: 48 Year
  Sex: Male
  Weight: 104.3273 kg

DRUGS (2)
  1. ZOLOFT [Suspect]
  2. PAXIL [Suspect]

REACTIONS (1)
  - COMPLETED SUICIDE [None]
